FAERS Safety Report 7643571-4 (Version None)
Quarter: 2011Q3

REPORT INFORMATION
  Report Type: 
  Country: None (occurrence: None)
  Receive Date: 20110729
  Receipt Date: 20110720
  Transmission Date: 20111222
  Serious: Yes (Death, Other)
  Sender: FDA-Public Use
  Company Number: JP-JNJFOC-20110701359

PATIENT
  Age: 87 Year
  Sex: Female

DRUGS (5)
  1. EVISTA [Concomitant]
     Indication: OSTEOPOROSIS
     Route: 048
     Dates: start: 20110204
  2. URSO 250 [Concomitant]
     Indication: HEPATITIS C
     Route: 048
     Dates: start: 20091210
  3. GALANTAMINE HYDROBROMIDE [Suspect]
     Indication: DEMENTIA ALZHEIMER'S TYPE
     Route: 048
     Dates: start: 20110527, end: 20110610
  4. ASPIRIN [Concomitant]
     Indication: CEREBRAL INFARCTION
     Route: 048
     Dates: start: 20101015
  5. ASPIRIN [Concomitant]
     Indication: ARRHYTHMIA
     Route: 048
     Dates: start: 20101015

REACTIONS (4)
  - FALL [None]
  - DEATH [None]
  - CONTUSION [None]
  - DECREASED APPETITE [None]
